FAERS Safety Report 8152540-X (Version None)
Quarter: 2012Q1

REPORT INFORMATION
  Report Type: 
  Country: None (occurrence: None)
  Receive Date: 20120221
  Receipt Date: 20120213
  Transmission Date: 20120608
  Serious: Yes (Hospitalization, Other)
  Sender: FDA-Public Use
  Company Number: ES-BRISTOL-MYERS SQUIBB COMPANY-16319931

PATIENT
  Age: 61 Year
  Sex: Male

DRUGS (1)
  1. METFORMIN HCL [Suspect]
     Indication: TYPE 2 DIABETES MELLITUS

REACTIONS (16)
  - JAUNDICE [None]
  - ALANINE AMINOTRANSFERASE INCREASED [None]
  - GAMMA-GLUTAMYLTRANSFERASE INCREASED [None]
  - HEPATOTOXICITY [None]
  - HEPATIC ENZYME INCREASED [None]
  - ABDOMINAL DISCOMFORT [None]
  - BLOOD BILIRUBIN INCREASED [None]
  - BILIRUBIN CONJUGATED INCREASED [None]
  - CHOLURIA [None]
  - MALAISE [None]
  - BLOOD ALKALINE PHOSPHATASE INCREASED [None]
  - ACCIDENTAL EXPOSURE [None]
  - NAUSEA [None]
  - DEFICIENCY OF BILE SECRETION [None]
  - CHOLESTASIS [None]
  - ASPARTATE AMINOTRANSFERASE INCREASED [None]
